FAERS Safety Report 18469752 (Version 1)
Quarter: 2020Q4

REPORT INFORMATION
  Report Type: Spontaneous
  Country: ES (occurrence: ES)
  Receive Date: 20201105
  Receipt Date: 20201105
  Transmission Date: 20210114
  Serious: Yes (Death, Other)
  Sender: FDA-Public Use
  Company Number: ES-PFIZER INC-2020422904

PATIENT
  Age: 46 Year
  Sex: Female

DRUGS (2)
  1. FARMORUBICINA [Suspect]
     Active Substance: EPIRUBICIN HYDROCHLORIDE
     Indication: SARCOMA
     Dosage: 25 ML, 1 VIAL 25ML
     Route: 042
     Dates: start: 20200921, end: 20200923
  2. TRONOXAL [Suspect]
     Active Substance: IFOSFAMIDE
     Indication: SARCOMA
     Dosage: UNK, 1 VIAL
     Route: 042
     Dates: start: 20200921, end: 20200923

REACTIONS (4)
  - Death [Fatal]
  - Bradyphrenia [Recovering/Resolving]
  - Myoclonus [Recovering/Resolving]
  - Ataxia [Recovering/Resolving]

NARRATIVE: CASE EVENT DATE: 20200923
